FAERS Safety Report 13319242 (Version 1)
Quarter: 2017Q1

REPORT INFORMATION
  Report Type: Report from Study
  Country: US (occurrence: US)
  Receive Date: 20170308
  Receipt Date: 20170308
  Transmission Date: 20170428
  Serious: No
  Sender: FDA-Public Use
  Company Number: US-AMGEN-USASL2016126212

PATIENT

DRUGS (1)
  1. SENSIPAR [Suspect]
     Active Substance: CINACALCET HYDROCHLORIDE
     Indication: PRODUCT USED FOR UNKNOWN INDICATION
     Dosage: 60 MG, QD
     Route: 048

REACTIONS (8)
  - Hypotension [Unknown]
  - Rash [Unknown]
  - Decreased appetite [Unknown]
  - Tachycardia [Unknown]
  - Paraesthesia [Unknown]
  - Dyspnoea [Unknown]
  - Hypoaesthesia [Unknown]
  - Pruritus [Unknown]
